FAERS Safety Report 20173242 (Version 1)
Quarter: 2021Q4

REPORT INFORMATION
  Report Type: Spontaneous
  Country: US (occurrence: US)
  Receive Date: 20211211
  Receipt Date: 20211211
  Transmission Date: 20220303
  Serious: No
  Sender: FDA-Public Use
  Company Number: US-009507513-2112USA002535

PATIENT
  Age: 76 Year
  Sex: Male

DRUGS (8)
  1. KEYTRUDA [Suspect]
     Active Substance: PEMBROLIZUMAB
     Indication: Non-small cell lung cancer
     Dosage: UNK
     Dates: start: 20210914, end: 20210914
  2. CHOLECALCIFEROL [Concomitant]
     Active Substance: CHOLECALCIFEROL
  3. LANSOPRAZOLE [Concomitant]
     Active Substance: LANSOPRAZOLE
  4. PROBIOTIC GAL [Concomitant]
  5. TAMSULOSIN [Concomitant]
     Active Substance: TAMSULOSIN
  6. ALBUTEROL SULFATE [Concomitant]
     Active Substance: ALBUTEROL SULFATE
  7. PEMETREXED [Concomitant]
     Active Substance: PEMETREXED
  8. CARBOPLATIN [Concomitant]
     Active Substance: CARBOPLATIN

REACTIONS (10)
  - Headache [Unknown]
  - Pain in extremity [Unknown]
  - Arthralgia [Unknown]
  - Pain in extremity [Unknown]
  - Back pain [Unknown]
  - Abdominal pain [Unknown]
  - Dizziness [Unknown]
  - Pyrexia [Unknown]
  - Feeding disorder [Unknown]
  - Pain [Unknown]

NARRATIVE: CASE EVENT DATE: 20210924
